FAERS Safety Report 9529300 (Version 1)
Quarter: 2013Q2

REPORT INFORMATION
  Report Type: Spontaneous
  Country: US (occurrence: None)
  Receive Date: 20130401
  Receipt Date: 20130401
  Transmission Date: 20140414
  Serious: No
  Sender: FDA-Public Use
  Company Number: PHEH2012US019300

PATIENT
  Sex: Male

DRUGS (2)
  1. EXELON PATCH [Suspect]
     Route: 062
  2. CARVEDILOL (CARVEDILOL) [Concomitant]

REACTIONS (3)
  - Presyncope [None]
  - Heart rate decreased [None]
  - Movement disorder [None]
